FAERS Safety Report 5010779-6 (Version None)
Quarter: 2006Q2

REPORT INFORMATION
  Report Type: 
  Country: None (occurrence: None)
  Receive Date: 20060524
  Receipt Date: 20060524
  Transmission Date: 20061013
  Serious: No
  Sender: FDA-Public Use
  Company Number: None

PATIENT
  Sex: Female
  Weight: 91 kg

DRUGS (1)
  1. VANCOMYCIN [Suspect]
     Indication: OSTEOMYELITIS
     Dosage: 1 GM Q 12 HRS IV
     Route: 042
     Dates: start: 20060513, end: 20060523

REACTIONS (2)
  - ANTIBIOTIC LEVEL ABOVE THERAPEUTIC [None]
  - BLOOD CREATININE INCREASED [None]
